FAERS Safety Report 6331664-3 (Version None)
Quarter: 2009Q3

REPORT INFORMATION
  Report Type: 
  Country: None (occurrence: None)
  Receive Date: 20090827
  Receipt Date: 20090818
  Transmission Date: 20100115
  Serious: Yes (Other)
  Sender: FDA-Public Use
  Company Number: US-B.I. PHARMACEUTICALS,INC./RIDGEFIELD-2009-DE-05501GD

PATIENT
  Age: 56 Year
  Sex: Male

DRUGS (7)
  1. PRAMIPEXOLE DIHYDROCHLORIDE [Suspect]
     Indication: PARKINSON'S DISEASE
     Dosage: 1125 MCG
  2. PRAMIPEXOLE DIHYDROCHLORIDE [Suspect]
     Dosage: 750 MCG
  3. PRAMIPEXOLE DIHYDROCHLORIDE [Suspect]
     Dosage: 250 MCG
  4. DIVALPROEX SODIUM [Suspect]
     Indication: SCHIZOPHRENIA, PARANOID TYPE
     Dosage: 2500 MG
  5. DIVALPROEX SODIUM [Suspect]
     Indication: AGGRESSION
  6. OLANZAPINE [Suspect]
     Indication: AGGRESSION
     Dosage: 25 MG
  7. TOPIRAMATE [Suspect]
     Indication: MOOD SWINGS
     Dosage: 50 MG

REACTIONS (5)
  - AGGRESSION [None]
  - DELUSION [None]
  - HALLUCINATION [None]
  - PSYCHOTIC DISORDER [None]
  - SELF INJURIOUS BEHAVIOUR [None]
